FAERS Safety Report 4990859-1 (Version None)
Quarter: 2006Q2

REPORT INFORMATION
  Report Type: 
  Country: None (occurrence: None)
  Receive Date: 20060428
  Receipt Date: 20060420
  Transmission Date: 20061013
  Serious: Yes (Life-Threatening)
  Sender: FDA-Public Use
  Company Number: TCI2006A01194

PATIENT
  Age: 74 Year
  Sex: Male

DRUGS (2)
  1. LEUPLIN FOR INJECTION KIT3.75 (LEUPRORELIN ACETATE FOR DEPOT SUSPENSIO [Suspect]
     Indication: PROSTATE CANCER
     Dosage: 3.75 MG (3.75 MG, 1 IN 28 D)
     Route: 058
     Dates: start: 20051115
  2. CHLORMADINONE ACETATE TAB [Suspect]
     Indication: PROSTATE CANCER
     Dosage: 100 MG (50 MG, 2 IN 1 D)
     Route: 048
     Dates: start: 20051101

REACTIONS (3)
  - CONDITION AGGRAVATED [None]
  - HEPATITIS C [None]
  - MALAISE [None]
